FAERS Safety Report 4755548-7 (Version None)
Quarter: 2005Q3

REPORT INFORMATION
  Report Type: 
  Country: None (occurrence: None)
  Receive Date: 20050830
  Receipt Date: 20050512
  Transmission Date: 20060218
  Serious: Yes (Life-Threatening, Hospitalization)
  Sender: FDA-Public Use
  Company Number: US-BRISTOL-MYERS SQUIBB COMPANY-12965893

PATIENT
  Age: 30 Year
  Sex: Female

DRUGS (6)
  1. ABILIFY [Suspect]
     Indication: BIPOLAR DISORDER
     Dates: start: 20041001
  2. TRAZODONE HCL [Suspect]
     Indication: BIPOLAR DISORDER
     Dates: start: 20010101, end: 20041001
  3. LEXAPRO [Suspect]
     Indication: DEPRESSION
     Route: 048
     Dates: start: 20040101
  4. LITHIUM [Suspect]
     Indication: BIPOLAR DISORDER
     Dates: start: 20041001
  5. LAMICTAL [Suspect]
     Indication: BIPOLAR DISORDER
     Dates: start: 20010101
  6. SEROQUEL [Suspect]
     Indication: BIPOLAR DISORDER
     Dates: start: 20010101, end: 20041001

REACTIONS (6)
  - DEPRESSION [None]
  - DRUG INEFFECTIVE [None]
  - INTENTIONAL MISUSE [None]
  - MANIA [None]
  - SUICIDE ATTEMPT [None]
  - WEIGHT INCREASED [None]
